FAERS Safety Report 19687081 (Version 2)
Quarter: 2022Q1

REPORT INFORMATION
  Report Type: Spontaneous
  Country: US (occurrence: US)
  Receive Date: 20210811
  Receipt Date: 20220203
  Transmission Date: 20220424
  Serious: No
  Sender: FDA-Public Use
  Company Number: US-PFIZER INC-2021890545

PATIENT
  Age: 46 Year
  Sex: Male

DRUGS (2)
  1. MEKTOVI [Suspect]
     Active Substance: BINIMETINIB
     Dosage: 15 MG
  2. MEKTOVI [Suspect]
     Active Substance: BINIMETINIB
     Dosage: 45 MG

REACTIONS (6)
  - Off label use [Unknown]
  - Dry skin [Unknown]
  - Malaise [Unknown]
  - Neurofibromatosis [Unknown]
  - Photosensitivity reaction [Unknown]
  - Skin disorder [Unknown]
